FAERS Safety Report 4871218-9 (Version None)
Quarter: 2005Q4

REPORT INFORMATION
  Report Type: 
  Country: None (occurrence: None)
  Receive Date: 20051229
  Receipt Date: 20051215
  Transmission Date: 20060501
  Serious: Yes (Other)
  Sender: FDA-Public Use
  Company Number: US200512000974

PATIENT
  Age: 91 Year
  Sex: Female
  Weight: 48.5 kg

DRUGS (8)
  1. HUMULIN R [Suspect]
     Indication: DIABETES MELLITUS NON-INSULIN-DEPENDENT
     Dates: start: 20050601
  2. HUMULIN 70/30 [Suspect]
     Dates: end: 20050601
  3. FUROSEMIDE [Concomitant]
  4. MACROBID [Concomitant]
  5. BACTRIM [Concomitant]
  6. LOTENSIN [Concomitant]
  7. DIOVAN [Concomitant]
  8. PLAVIX [Concomitant]

REACTIONS (14)
  - ANXIETY [None]
  - BLOOD GLUCOSE DECREASED [None]
  - BLOOD GLUCOSE INCREASED [None]
  - BREAST CANCER [None]
  - CARDIAC FAILURE CONGESTIVE [None]
  - DECREASED APPETITE [None]
  - DYSPNOEA [None]
  - FALL [None]
  - HALLUCINATION [None]
  - INSOMNIA [None]
  - MUSCULOSKELETAL CHEST PAIN [None]
  - SPINAL CORD NEOPLASM [None]
  - WEIGHT DECREASED [None]
  - WHEELCHAIR USER [None]
